FAERS Safety Report 5732861-8 (Version None)
Quarter: 2008Q2

REPORT INFORMATION
  Report Type: 
  Country: None (occurrence: None)
  Receive Date: 20080506
  Receipt Date: 20080506
  Transmission Date: 20081010
  Serious: Yes (Other)
  Sender: FDA-Public Use
  Company Number: None

PATIENT
  Age: 45 Year
  Sex: Female
  Weight: 45.3597 kg

DRUGS (1)
  1. DIGITEK 0.125 BERTEK [Suspect]
     Indication: CARDIAC FAILURE
     Dosage: 0.125 MG 1 DAILY PO
     Route: 048
     Dates: start: 20070601, end: 20080505

REACTIONS (4)
  - CARDIAC ARREST [None]
  - CHEST DISCOMFORT [None]
  - DEPRESSED MOOD [None]
  - EXTRASYSTOLES [None]
